FAERS Safety Report 17418115 (Version 3)
Quarter: 2025Q4

REPORT INFORMATION
  Report Type: Report from Study
  Country: EU (occurrence: EU)
  Receive Date: 20200214
  Receipt Date: 20251105
  Transmission Date: 20260118
  Serious: Yes (Other)
  Sender: AUROBINDO
  Company Number: EU-002147023-NVSC2020SE025296

PATIENT
  Sex: Male

DRUGS (6)
  1. OMEPRAZOLE [Suspect]
     Active Substance: OMEPRAZOLE
     Indication: Product used for unknown indication
     Dosage: UNK
     Route: 065
  2. NINTEDANIB [Suspect]
     Active Substance: NINTEDANIB
     Indication: Pulmonary fibrosis
     Dosage: 2 DOSAGE FORM, ONCE A DAY
     Route: 065
  3. INDACATEROL [Concomitant]
     Active Substance: INDACATEROL
     Indication: Product used for unknown indication
     Dosage: UNK
     Route: 065
  4. OLMESARTAN [Concomitant]
     Active Substance: OLMESARTAN
     Indication: Product used for unknown indication
     Dosage: UNK
     Route: 065
  5. LERCANIDIPINE [Concomitant]
     Active Substance: LERCANIDIPINE
     Indication: Product used for unknown indication
     Dosage: UNK
     Route: 065
  6. ALBUTEROL [Concomitant]
     Active Substance: ALBUTEROL
     Indication: Product used for unknown indication
     Dosage: UNK
     Route: 065

REACTIONS (3)
  - Mesenteric vein thrombosis [Recovered/Resolved]
  - Intestinal ischaemia [Recovered/Resolved]
  - Toxicity to various agents [Unknown]
